FAERS Safety Report 8788748 (Version 1)
Quarter: 2012Q4

REPORT INFORMATION
  Report Type: 
  Country: FR (occurrence: FR)
  Receive Date: 20120917
  Receipt Date: 20120917
  Transmission Date: 20130627
  Serious: Yes (Hospitalization)
  Sender: FDA-Public Use
  Company Number: FR-GE HEALTHCARE MEDICAL DIAGNOSTICS-OMPQ-NO-1209S-0931

PATIENT
  Age: 79 Year
  Sex: Male

DRUGS (4)
  1. OMNIPAQUE [Suspect]
     Indication: SPINAL DISORDER
     Route: 042
     Dates: start: 20110804, end: 20110804
  2. COKENZEN [Suspect]
     Indication: HYPERTENSION
  3. ARTOTEC [Suspect]
     Route: 048
     Dates: end: 20110804
  4. INEXIUM 40 [Concomitant]

REACTIONS (1)
  - Renal failure acute [Recovered/Resolved]
